FAERS Safety Report 7673683-0 (Version None)
Quarter: 2011Q3

REPORT INFORMATION
  Report Type: 
  Country: None (occurrence: None)
  Receive Date: 20110810
  Receipt Date: 20110802
  Transmission Date: 20111222
  Serious: Yes (Other)
  Sender: FDA-Public Use
  Company Number: US-TYCO HEALTHCARE/MALLINCKRODT-T201101498

PATIENT
  Age: 65 Year
  Sex: Male

DRUGS (2)
  1. OPTIRAY 300 [Suspect]
     Indication: AORTIC ANEURYSM REPAIR
     Dosage: 195 ML, UNK
  2. HEPARIN [Suspect]
     Indication: ANTICOAGULANT THERAPY
     Dosage: TO MAINTAIN AN ACTIVATED CLOTTING TIME OF }300 SEC
     Route: 042

REACTIONS (3)
  - MENTAL STATUS CHANGES [None]
  - MUSCULAR WEAKNESS [None]
  - BLINDNESS TRANSIENT [None]
